FAERS Safety Report 4784317-7 (Version None)
Quarter: 2005Q3

REPORT INFORMATION
  Report Type: 
  Country: None (occurrence: None)
  Receive Date: 20050930
  Receipt Date: 20050721
  Transmission Date: 20060218
  Serious: Yes (Disabling)
  Sender: FDA-Public Use
  Company Number: US-BRISTOL-MYERS SQUIBB COMPANY-13046131

PATIENT
  Age: 53 Year
  Sex: Female

DRUGS (14)
  1. IXABEPILONE [Suspect]
     Indication: BREAST CANCER
     Route: 042
     Dates: start: 20050602, end: 20050602
  2. CAPECITABINE [Suspect]
     Indication: BREAST CANCER
     Route: 048
     Dates: start: 20050609, end: 20050609
  3. LEVAQUIN [Concomitant]
     Dates: start: 20050516
  4. ZOFRAN [Concomitant]
     Dates: start: 20050512
  5. TAGAMET [Concomitant]
     Dates: start: 20050512
  6. BENADRYL [Concomitant]
     Dates: start: 20050512
  7. MEGACE [Concomitant]
     Dates: start: 20050602
  8. COMPAZINE [Concomitant]
     Dates: start: 20050512
  9. DARVOCET-N 100 [Concomitant]
     Dates: start: 20050615
  10. MULTI-VITAMIN [Concomitant]
     Dates: start: 20001024
  11. ZOMETA [Concomitant]
     Dates: start: 20020228
  12. ARANESP [Concomitant]
     Dates: start: 20050317, end: 20050427
  13. NEXIUM [Concomitant]
     Dates: start: 20050329
  14. ATIVAN [Concomitant]
     Dates: start: 20050329

REACTIONS (1)
  - COORDINATION ABNORMAL [None]
